FAERS Safety Report 9262941 (Version 1)
Quarter: 2013Q2

REPORT INFORMATION
  Report Type: Report from Study
  Country: DE (occurrence: DE)
  Receive Date: 20130430
  Receipt Date: 20130430
  Transmission Date: 20140414
  Serious: Yes (Other)
  Sender: FDA-Public Use
  Company Number: DE-ABBOTT-13P-062-1082820-00

PATIENT
  Age: 73 Year
  Sex: Male

DRUGS (9)
  1. TRENANTONE [Suspect]
     Indication: PROSTATE CANCER
     Route: 058
     Dates: start: 20120628
  2. TRENANTONE [Suspect]
     Indication: ADJUVANT THERAPY
  3. LEUPRORELIN ACETATE [Concomitant]
     Indication: CONDITION AGGRAVATED
     Dates: start: 20120628
  4. LEUPRORELIN ACETATE [Concomitant]
     Indication: PROPHYLAXIS
  5. AGENTS ACTING ON THE RENIN-ANGIOTENSIN SYSTEM [Concomitant]
     Indication: PRODUCT USED FOR UNKNOWN INDICATION
  6. DIURETICS [Concomitant]
     Indication: PRODUCT USED FOR UNKNOWN INDICATION
  7. DIURETICS [Concomitant]
  8. ZOMETA [Concomitant]
     Indication: METASTASES TO BONE
     Route: 042
     Dates: start: 20120621
  9. LEKOVIT CA [Concomitant]
     Indication: METASTASES TO BONE
     Dates: start: 20120925

REACTIONS (1)
  - Metastases to pelvis [Unknown]
